FAERS Safety Report 7759386-2 (Version None)
Quarter: 2011Q3

REPORT INFORMATION
  Report Type: 
  Country: None (occurrence: None)
  Receive Date: 20110919
  Receipt Date: 20110908
  Transmission Date: 20111222
  Serious: Yes (Other)
  Sender: FDA-Public Use
  Company Number: US-JNJFOC-20110904268

PATIENT
  Sex: Female
  Weight: 104.33 kg

DRUGS (8)
  1. ZOLPIDEM [Concomitant]
     Indication: INSOMNIA
     Route: 048
     Dates: start: 20070101
  2. REMICADE [Suspect]
     Route: 042
     Dates: start: 20010101, end: 20010101
  3. FOLIC ACID [Concomitant]
     Indication: RHEUMATOID ARTHRITIS
     Route: 048
     Dates: start: 19990101
  4. MICARDIS [Concomitant]
     Indication: HYPERTENSION
     Route: 048
     Dates: start: 20070101
  5. METHOTREXATE [Concomitant]
     Indication: RHEUMATOID ARTHRITIS
     Route: 048
     Dates: start: 19800101
  6. ACETAMINOPHEN [Concomitant]
     Indication: PAIN
     Route: 048
     Dates: start: 19990101
  7. REMICADE [Suspect]
     Indication: RHEUMATOID ARTHRITIS
     Route: 042
     Dates: start: 20000101, end: 20000101
  8. TRAMADOL HCL [Concomitant]
     Indication: PAIN
     Route: 048
     Dates: start: 19990101

REACTIONS (7)
  - DYSSTASIA [None]
  - INCORRECT DOSE ADMINISTERED [None]
  - BACK PAIN [None]
  - INFUSION RELATED REACTION [None]
  - ERYTHEMA [None]
  - DYSPNOEA [None]
  - RENAL PAIN [None]
